FAERS Safety Report 20937663 (Version 1)
Quarter: 2022Q2

REPORT INFORMATION
  Report Type: Spontaneous
  Country: US (occurrence: None)
  Receive Date: 20220608
  Receipt Date: 20220608
  Transmission Date: 20220721
  Serious: Yes (Death)
  Sender: FDA-Public Use
  Company Number: None

PATIENT
  Sex: Female

DRUGS (19)
  1. CARBOPLATIN [Suspect]
     Active Substance: CARBOPLATIN
     Indication: Lung neoplasm malignant
     Dosage: 450 MG/45ML? ?INFUSE 376 MG INTRAVENOUSLY ON DAY 1 EVERY 21 DAYS
     Route: 042
     Dates: start: 20220405, end: 20220606
  2. CARBOPLATIN [Suspect]
     Active Substance: CARBOPLATIN
     Dosage: OTHER FREQUENCY : EVERY 21 DAYS;?
     Route: 042
     Dates: start: 20220405, end: 20220606
  3. AMIDOARONE [Concomitant]
  4. AMLODIPINE [Concomitant]
  5. ASPIRIN CHW [Concomitant]
  6. CYANOCOBALAMIN [Concomitant]
     Active Substance: CYANOCOBALAMIN
  7. DEXAMEHASONE SODIUM [Concomitant]
  8. FOLIC ACID [Concomitant]
     Active Substance: FOLIC ACID
  9. HYDROMORPHONE [Concomitant]
     Active Substance: HYDROMORPHONE
  10. LASIX [Concomitant]
     Active Substance: FUROSEMIDE
  11. MINOXIDIL POW [Concomitant]
  12. PALONOSETRON HYDROCHLORID [Concomitant]
  13. PATNOPRAZOLE [Concomitant]
  14. PLAVIX [Concomitant]
     Active Substance: CLOPIDOGREL BISULFATE
  15. POTASSIUM CHLORIDE [Concomitant]
     Active Substance: POTASSIUM CHLORIDE
  16. SIMVASTATIN [Concomitant]
  17. SODIUM CHLORIDE [Concomitant]
     Active Substance: SODIUM CHLORIDE
  18. XANAX [Concomitant]
     Active Substance: ALPRAZOLAM
  19. ZANTAC [Concomitant]
     Active Substance: RANITIDINE HYDROCHLORIDE

REACTIONS (1)
  - Death [None]
